FAERS Safety Report 10029359 (Version 1)
Quarter: 2014Q1

REPORT INFORMATION
  Report Type: Spontaneous
  Country: PL (occurrence: PL)
  Receive Date: 20140322
  Receipt Date: 20140322
  Transmission Date: 20141002
  Serious: Yes (Death)
  Sender: FDA-Public Use
  Company Number: PL-ROCHE-1369112

PATIENT
  Age: 30 Year
  Sex: Female

DRUGS (5)
  1. MABTHERA [Suspect]
     Indication: B-CELL LYMPHOMA
     Route: 065
     Dates: end: 201308
  2. CYCLOPHOSPHAMIDE [Concomitant]
     Indication: B-CELL LYMPHOMA
  3. DOXORUBICIN [Concomitant]
     Indication: B-CELL LYMPHOMA
  4. VINCRISTINE [Concomitant]
     Indication: B-CELL LYMPHOMA
  5. PREDNISONE [Concomitant]
     Indication: B-CELL LYMPHOMA

REACTIONS (1)
  - Death [Fatal]
